FAERS Safety Report 16738337 (Version 2)
Quarter: 2019Q3

REPORT INFORMATION
  Report Type: Spontaneous
  Country: HU (occurrence: HU)
  Receive Date: 20190825
  Receipt Date: 20190924
  Transmission Date: 20191005
  Serious: Yes (Other)
  Sender: FDA-Public Use
  Company Number: HU-AMGEN-HUNSP2019136354

PATIENT
  Age: 70 Year
  Sex: Male

DRUGS (2)
  1. ENBREL [Suspect]
     Active Substance: ETANERCEPT
     Indication: RHEUMATOID ARTHRITIS
     Dosage: 25 MG, WEEKLY, 1X (FOR 6 YEARS)
     Route: 058
     Dates: start: 2013
  2. ARAVA [Concomitant]
     Active Substance: LEFLUNOMIDE
     Dosage: 20 MILLIGRAM, DAILY

REACTIONS (4)
  - Retinal haemorrhage [Unknown]
  - Maculopathy [Unknown]
  - Macular detachment [Unknown]
  - Off label use [Unknown]

NARRATIVE: CASE EVENT DATE: 20190620
